FAERS Safety Report 5464734-2 (Version None)
Quarter: 2007Q3

REPORT INFORMATION
  Report Type: 
  Country: None (occurrence: None)
  Receive Date: 20070921
  Receipt Date: 20070910
  Transmission Date: 20080115
  Serious: Yes (Death)
  Sender: FDA-Public Use
  Company Number: IE-PFIZER INC-2007061604

PATIENT
  Sex: Female

DRUGS (1)
  1. IDARUBICIN HCL [Suspect]
     Indication: MULTIPLE MYELOMA

REACTIONS (3)
  - DEATH [None]
  - DRUG ADMINISTRATION ERROR [None]
  - OVERDOSE [None]
